FAERS Safety Report 11909199 (Version 1)
Quarter: 2016Q1

REPORT INFORMATION
  Report Type: Spontaneous
  Country: AU (occurrence: AU)
  Receive Date: 20160112
  Receipt Date: 20160112
  Transmission Date: 20160526
  Serious: Yes (Other)
  Sender: FDA-Public Use
  Company Number: AU-ROCHE-1692408

PATIENT
  Age: 68 Year
  Sex: Female

DRUGS (1)
  1. RIVOTRIL [Suspect]
     Active Substance: CLONAZEPAM
     Indication: FIBROMYALGIA
     Route: 065
     Dates: start: 1994

REACTIONS (6)
  - Myalgia [Unknown]
  - Herpes zoster [Unknown]
  - Stress [Unknown]
  - Vertigo [Unknown]
  - Fatigue [Unknown]
  - Hand fracture [Unknown]
